APPROVED DRUG PRODUCT: AXID
Active Ingredient: NIZATIDINE
Strength: 300MG
Dosage Form/Route: CAPSULE;ORAL
Application: N019508 | Product #002
Applicant: SMITHKLINE BEECHAM CORP DBA GLAXOSMITHKLINE
Approved: Apr 12, 1988 | RLD: No | RS: No | Type: DISCN